FAERS Safety Report 10082821 (Version 1)
Quarter: 2014Q2

REPORT INFORMATION
  Report Type: Spontaneous
  Country: US (occurrence: US)
  Receive Date: 20140416
  Receipt Date: 20140416
  Transmission Date: 20141212
  Serious: No
  Sender: FDA-Public Use
  Company Number: US-GILEAD-2014-0099928

PATIENT
  Sex: Male

DRUGS (6)
  1. LETAIRIS [Suspect]
     Indication: PRODUCT USED FOR UNKNOWN INDICATION
     Dosage: 10 MG, QD
     Route: 065
     Dates: start: 20140127
  2. LETAIRIS [Suspect]
     Dosage: UNK
     Route: 065
  3. LASIX                              /00032601/ [Concomitant]
     Dosage: INCREASED DOSE
  4. POTASSIUM CHLORIDE [Concomitant]
     Dosage: 10 MEQ, QD
  5. POTASSIUM CHLORIDE [Concomitant]
     Dosage: DECREASED DOSE
  6. NO SALT [Concomitant]

REACTIONS (2)
  - Oedema [Not Recovered/Not Resolved]
  - Oedema [Unknown]
